FAERS Safety Report 21686665 (Version 2)
Quarter: 2022Q4

REPORT INFORMATION
  Report Type: Spontaneous
  Country: JP (occurrence: JP)
  Receive Date: 20221206
  Receipt Date: 20221226
  Transmission Date: 20230113
  Serious: Yes (Death)
  Sender: FDA-Public Use
  Company Number: JP-CHUGAI-2022047626

PATIENT
  Age: 73 Year
  Sex: Male

DRUGS (1)
  1. EVRYSDI [Suspect]
     Active Substance: RISDIPLAM
     Indication: Spinal muscular atrophy
     Dosage: UNK, TRANSLUMINAL ADMINISTRATION
     Route: 048
     Dates: start: 20221012

REACTIONS (2)
  - Dehydration [Fatal]
  - Renal failure [Fatal]

NARRATIVE: CASE EVENT DATE: 20221101
